FAERS Safety Report 8846276 (Version 2)
Quarter: 2013Q1

REPORT INFORMATION
  Report Type: Spontaneous
  Country: NL (occurrence: NL)
  Receive Date: 20121018
  Receipt Date: 20130221
  Transmission Date: 20140127
  Serious: Yes (Other)
  Sender: FDA-Public Use
  Company Number: NL-AMGEN-NLDSP2012065751

PATIENT
  Age: 50 Year
  Sex: Female

DRUGS (3)
  1. ENBREL [Suspect]
     Indication: RHEUMATOID ARTHRITIS
     Dosage: 50 MG, WEEKLY
     Dates: start: 20120626
  2. ENBREL [Suspect]
     Dosage: 50 MG, ONCE EVERY 10 DAYS
  3. PREDNISONE [Concomitant]
     Dosage: UNK

REACTIONS (4)
  - Photosensitivity reaction [Unknown]
  - Solar lentigo [Unknown]
  - Urinary tract infection [Recovering/Resolving]
  - Influenza [Recovering/Resolving]
